FAERS Safety Report 4569496-9 (Version None)
Quarter: 2005Q1

REPORT INFORMATION
  Report Type: 
  Country: None (occurrence: None)
  Receive Date: 20050201
  Receipt Date: 20050117
  Transmission Date: 20050727
  Serious: Yes (Hospitalization)
  Sender: FDA-Public Use
  Company Number: A01200500299

PATIENT
  Age: 48 Year
  Sex: Male

DRUGS (2)
  1. STILNOX - (ZOLPIDEM) - TABLET - 10 MG / TABLET - 10 MG [Suspect]
     Indication: INSOMNIA
     Dosage: 10 MG OD/ 40 MG, ORAL
     Route: 048
     Dates: start: 20050113, end: 20050113
  2. STILNOX - (ZOLPIDEM) - TABLET - 10 MG / TABLET - 10 MG [Suspect]
     Indication: INSOMNIA
     Dosage: 10 MG OD/ 40 MG, ORAL
     Route: 048
     Dates: start: 20050114, end: 20050115

REACTIONS (4)
  - DRUG ABUSER [None]
  - EPILEPSY [None]
  - GRAND MAL CONVULSION [None]
  - OVERDOSE [None]
